FAERS Safety Report 18219184 (Version 2)
Quarter: 2020Q3

REPORT INFORMATION
  Report Type: Spontaneous
  Country: US (occurrence: US)
  Receive Date: 20200901
  Receipt Date: 20200920
  Transmission Date: 20201103
  Serious: Yes (Other)
  Sender: FDA-Public Use
  Company Number: US-TEVA-2020-US-1821443

PATIENT
  Age: 12 Year
  Sex: Male

DRUGS (12)
  1. LEVETIRACETAM. [Suspect]
     Active Substance: LEVETIRACETAM
     Indication: SEIZURE
     Route: 065
  2. DIPHENHYDRAMINE. [Suspect]
     Active Substance: DIPHENHYDRAMINE
     Indication: ALTERNATING HEMIPLEGIA OF CHILDHOOD
     Route: 065
  3. TRIHEXYPHENIDYL [Suspect]
     Active Substance: TRIHEXYPHENIDYL
     Indication: ALTERNATING HEMIPLEGIA OF CHILDHOOD
     Dosage: TWO SEPARATE TREATMENTS
     Route: 065
  4. METHYLPHENIDATE. [Suspect]
     Active Substance: METHYLPHENIDATE
     Indication: ATTENTION DEFICIT HYPERACTIVITY DISORDER
     Route: 065
  5. DIPHENHYDRAMINE. [Suspect]
     Active Substance: DIPHENHYDRAMINE
     Indication: DYSTONIA
  6. HALOPERIDOL. [Suspect]
     Active Substance: HALOPERIDOL
     Indication: AGGRESSION
     Route: 065
  7. PROPRANOLOL [Suspect]
     Active Substance: PROPRANOLOL HYDROCHLORIDE
     Indication: AGGRESSION
     Route: 065
  8. TRIHEXYPHENIDYL [Suspect]
     Active Substance: TRIHEXYPHENIDYL
     Indication: DYSTONIA
  9. FLUOXETINE [Concomitant]
     Active Substance: FLUOXETINE HYDROCHLORIDE
     Indication: PRODUCT USED FOR UNKNOWN INDICATION
     Route: 065
  10. VALPROIC ACID. [Suspect]
     Active Substance: VALPROIC ACID
     Indication: SEIZURE
     Route: 065
  11. RISPERIDONE. [Suspect]
     Active Substance: RISPERIDONE
     Indication: AGGRESSION
     Route: 065
  12. GUANFACINE. [Concomitant]
     Active Substance: GUANFACINE
     Indication: PRODUCT USED FOR UNKNOWN INDICATION
     Route: 065

REACTIONS (8)
  - Psychotic disorder [Recovered/Resolved]
  - Aggression [Recovering/Resolving]
  - Paranoia [Recovered/Resolved]
  - Self-injurious ideation [Recovered/Resolved]
  - Drug ineffective [Unknown]
  - Hallucination, auditory [Recovered/Resolved]
  - Psychomotor hyperactivity [Recovering/Resolving]
  - Delusion [Recovered/Resolved]
